FAERS Safety Report 8336771-1 (Version None)
Quarter: 2012Q2

REPORT INFORMATION
  Report Type: 
  Country: None (occurrence: None)
  Receive Date: 20120504
  Receipt Date: 20120110
  Transmission Date: 20120825
  Serious: Yes (Hospitalization)
  Sender: FDA-Public Use
  Company Number: JP-JNJFOC-20110707673

PATIENT
  Sex: Female
  Weight: 76 kg

DRUGS (15)
  1. METHOTREXATE [Concomitant]
     Route: 048
  2. DICLOFENAC SODIUM [Concomitant]
     Route: 062
     Dates: start: 20110415
  3. FOLIC ACID [Concomitant]
     Indication: PROPHYLAXIS
     Route: 048
     Dates: start: 20071103, end: 20110716
  4. CIMETIDINE [Concomitant]
     Indication: GASTRITIS PROPHYLAXIS
     Route: 048
     Dates: start: 20090514
  5. SULFASALAZINE [Concomitant]
  6. DICLOFENAC SODIUM [Concomitant]
     Route: 062
     Dates: start: 20110708
  7. TELMISARTAN [Concomitant]
     Indication: HYPERTENSION
     Route: 048
     Dates: start: 20110415
  8. DICLOFENAC SODIUM [Concomitant]
     Route: 062
     Dates: start: 20110805
  9. GOLIMUMAB [Suspect]
     Indication: RHEUMATOID ARTHRITIS
     Route: 058
     Dates: start: 20090219
  10. CELECOXIB [Concomitant]
     Indication: RHEUMATOID ARTHRITIS
     Route: 048
     Dates: start: 20100319
  11. LEFLUNOMIDE [Concomitant]
     Route: 048
  12. METHOTREXATE [Concomitant]
     Indication: RHEUMATOID ARTHRITIS
     Route: 048
     Dates: start: 20071103, end: 20110715
  13. PREDNISOLONE ACETATE [Concomitant]
     Indication: RHEUMATOID ARTHRITIS
     Route: 048
     Dates: start: 20071031
  14. AMLODIPINE BESYLATE [Concomitant]
     Indication: HYPERTENSION
     Route: 048
     Dates: start: 20090820
  15. DICLOFENAC SODIUM [Concomitant]
     Indication: RHEUMATOID ARTHRITIS
     Route: 062
     Dates: start: 20110218, end: 20110804

REACTIONS (3)
  - URTICARIA [None]
  - HEPATIC FUNCTION ABNORMAL [None]
  - OTITIS MEDIA [None]
